FAERS Safety Report 7000732-5 (Version None)
Quarter: 2010Q3

REPORT INFORMATION
  Report Type: 
  Country: None (occurrence: None)
  Receive Date: 20100920
  Receipt Date: 20091203
  Transmission Date: 20110219
  Serious: No
  Sender: FDA-Public Use
  Company Number: US-ASTRAZENECA-2009SE30050

PATIENT
  Age: 14 Year
  Sex: Male
  Weight: 67.6 kg

DRUGS (7)
  1. SEROQUEL [Suspect]
     Route: 048
     Dates: start: 20070101
  2. SEROQUEL [Suspect]
     Route: 048
  3. SEROQUEL [Suspect]
     Route: 048
  4. SEROQUEL [Suspect]
     Route: 048
  5. SEROQUEL [Suspect]
     Route: 048
     Dates: end: 20091119
  6. SEROQUEL [Suspect]
     Route: 048
     Dates: start: 20091101
  7. ADDERALL 10 [Concomitant]

REACTIONS (4)
  - BLOOD PRESSURE INCREASED [None]
  - HEART RATE INCREASED [None]
  - SPEECH DISORDER [None]
  - WRONG TECHNIQUE IN DRUG USAGE PROCESS [None]
